FAERS Safety Report 17855566 (Version 1)
Quarter: 2020Q2

REPORT INFORMATION
  Report Type: Spontaneous
  Country: US (occurrence: US)
  Receive Date: 20200603
  Receipt Date: 20200603
  Transmission Date: 20200714
  Serious: Yes (Other)
  Sender: FDA-Public Use
  Company Number: US-CELGENEUS-USA-20200508701

PATIENT

DRUGS (7)
  1. VIDAZA [Suspect]
     Active Substance: AZACITIDINE
     Indication: ACUTE MYELOID LEUKAEMIA
  2. RIGOSERTIB [Suspect]
     Active Substance: RIGOSERTIB
     Dosage: 280 MILLIGRAM
     Route: 048
  3. VIDAZA [Suspect]
     Active Substance: AZACITIDINE
     Indication: MYELODYSPLASTIC SYNDROME
     Dosage: 75 MILLIGRAM/SQ. METER
     Route: 065
  4. RIGOSERTIB [Suspect]
     Active Substance: RIGOSERTIB
     Indication: ACUTE MYELOID LEUKAEMIA
     Dosage: 560 MILLIGRAM
     Route: 048
  5. RIGOSERTIB [Suspect]
     Active Substance: RIGOSERTIB
     Indication: CHRONIC MYELOMONOCYTIC LEUKAEMIA
     Dosage: 560 MILLIGRAM
     Route: 048
  6. RIGOSERTIB [Suspect]
     Active Substance: RIGOSERTIB
     Indication: MYELODYSPLASTIC SYNDROME
     Dosage: 280 MILLIGRAM
     Route: 048
  7. VIDAZA [Suspect]
     Active Substance: AZACITIDINE
     Indication: CHRONIC MYELOMONOCYTIC LEUKAEMIA

REACTIONS (1)
  - Thrombocytopenia [Unknown]
